FAERS Safety Report 24109708 (Version 1)
Quarter: 2024Q3

REPORT INFORMATION
  Report Type: Spontaneous
  Country: US (occurrence: US)
  Receive Date: 20240718
  Receipt Date: 20240718
  Transmission Date: 20241017
  Serious: Yes (Other)
  Sender: PFIZER
  Company Number: US-MLMSERVICE-20240704-PI118843-00082-4

PATIENT
  Age: 51 Year
  Sex: Male

DRUGS (6)
  1. CARBOPLATIN [Suspect]
     Active Substance: CARBOPLATIN
     Indication: Metastases to lymph nodes
     Dosage: AREA UNDER THE CURVE [AUC], 5 UNTIL 4 CYCLES
  2. CARBOPLATIN [Suspect]
     Active Substance: CARBOPLATIN
     Indication: Metastases to liver
     Dosage: AREA UNDER THE CURVE [AUC], 4 FOR 8 CYCLES
  3. CARBOPLATIN [Suspect]
     Active Substance: CARBOPLATIN
     Indication: Pancreatic neuroendocrine tumour metastatic
  4. ETOPOSIDE [Concomitant]
     Active Substance: ETOPOSIDE
     Indication: Pancreatic neuroendocrine tumour metastatic
     Dosage: FREQ:21 D;CYCLE: 1: 100 MG/M2 ON DAYS 1 THROUGH 3 EVERY 21 DAYS INITIALLY WITH A 50% DOSE REDUCTION
  5. ETOPOSIDE [Concomitant]
     Active Substance: ETOPOSIDE
     Indication: Metastases to lymph nodes
     Dosage: FREQ:21 D;CYCLE: 2: 75% OF FULL DOSE (100 MG/M2 ON DAYS 1 THROUGH 3) EVERY 21 DAYS
  6. ETOPOSIDE [Concomitant]
     Active Substance: ETOPOSIDE
     Indication: Metastases to liver
     Dosage: FREQ:21 D;85% OF FULL DOSE (100 MG/M2 ON DAYS 1 THROUGH 3) EVERY 21 DAYS (THEREAFTER CYCLE 2)

REACTIONS (2)
  - Neuropathy peripheral [Unknown]
  - Cytopenia [Unknown]
